FAERS Safety Report 24743482 (Version 1)
Quarter: 2024Q4

REPORT INFORMATION
  Report Type: Other
  Country: US (occurrence: US)
  Receive Date: 20241217
  Receipt Date: 20241217
  Transmission Date: 20250114
  Serious: No
  Sender: MADRIGAL PHARMACEUTICALS
  Company Number: US-MADRIGAL PHARMACEUTICALS, INC-2024REZ3663

PATIENT

DRUGS (9)
  1. REZDIFFRA [Suspect]
     Active Substance: RESMETIROM
     Indication: Metabolic dysfunction-associated steatohepatitis
     Dosage: 80 MILLIGRAM, QD
     Route: 048
     Dates: start: 20241108
  2. PANTOPRAZOLE [Concomitant]
     Active Substance: PANTOPRAZOLE
  3. COLESTIPOL [Concomitant]
     Active Substance: COLESTIPOL
  4. FENOFIBRATE [Concomitant]
     Active Substance: FENOFIBRATE
     Dosage: 120 MILLIGRAM
  5. BUSPIRONE HCL [Concomitant]
     Active Substance: BUSPIRONE HYDROCHLORIDE
     Dosage: 10 MILLIGRAM
  6. TRIFLUOPERAZINE HYDROCHLORIDE [Concomitant]
     Active Substance: TRIFLUOPERAZINE HYDROCHLORIDE
     Dosage: 2 MILLIGRAM
  7. MELATONIN [Concomitant]
     Active Substance: MELATONIN
     Dosage: 10 MILLIGRAM
  8. ZYPREXA [Concomitant]
     Active Substance: OLANZAPINE
     Indication: Feeling abnormal
     Dosage: 10 MILLIGRAM
  9. ZOLOFT [Concomitant]
     Active Substance: SERTRALINE HYDROCHLORIDE
     Indication: Feeling abnormal
     Dosage: 100 MILLIGRAM

REACTIONS (5)
  - Hepatic pain [Not Recovered/Not Resolved]
  - Somnolence [Not Recovered/Not Resolved]
  - Feeling abnormal [Not Recovered/Not Resolved]
  - Diarrhoea [Not Recovered/Not Resolved]
  - Pruritus [Recovering/Resolving]

NARRATIVE: CASE EVENT DATE: 20240101
